FAERS Safety Report 6114767-8 (Version None)
Quarter: 2009Q1

REPORT INFORMATION
  Report Type: 
  Country: None (occurrence: None)
  Receive Date: 20090313
  Receipt Date: 20090304
  Transmission Date: 20090719
  Serious: Yes (Death, Other)
  Sender: FDA-Public Use
  Company Number: FR-ABBOTT-09P-056-0557911-00

PATIENT
  Sex: Female
  Weight: 63 kg

DRUGS (5)
  1. HUMIRA [Suspect]
     Indication: RHEUMATOID ARTHRITIS
     Route: 058
     Dates: start: 20030401, end: 20090101
  2. HUMIRA [Suspect]
     Route: 058
     Dates: start: 20090126, end: 20090212
  3. ANTICOAGULAT NOS [Suspect]
     Indication: PHLEBITIS
     Dates: start: 20081101, end: 20090101
  4. PREDNISONE [Concomitant]
     Indication: RHEUMATOID ARTHRITIS
     Route: 048
     Dates: start: 19990101, end: 20090101
  5. METHOTREXATE [Concomitant]
     Indication: RHEUMATOID ARTHRITIS
     Dates: start: 19930101, end: 20090101

REACTIONS (6)
  - ABDOMINAL PAIN UPPER [None]
  - BACK PAIN [None]
  - PHLEBITIS [None]
  - SUDDEN DEATH [None]
  - TIBIA FRACTURE [None]
  - VOMITING [None]
